FAERS Safety Report 13061521 (Version 1)
Quarter: 2016Q4

REPORT INFORMATION
  Report Type: Spontaneous
  Country: US (occurrence: US)
  Receive Date: 20161226
  Receipt Date: 20161226
  Transmission Date: 20170207
  Serious: No
  Sender: FDA-Public Use
  Company Number: US-NOVEN PHARMACEUTICALS, INC.-US2016000195

PATIENT

DRUGS (1)
  1. MINIVELLE [Suspect]
     Active Substance: ESTRADIOL
     Indication: MENOPAUSAL SYMPTOMS
     Dosage: 0.0375 MG, UNKNOWN
     Route: 062

REACTIONS (8)
  - Product use issue [Unknown]
  - Arthralgia [Unknown]
  - Hormone level abnormal [Unknown]
  - Bone pain [Unknown]
  - Hot flush [Unknown]
  - Mood swings [Unknown]
  - Headache [Unknown]
  - Product adhesion issue [Unknown]
